FAERS Safety Report 8545475-1 (Version None)
Quarter: 2012Q3

REPORT INFORMATION
  Report Type: 
  Country: None (occurrence: None)
  Receive Date: 20120727
  Receipt Date: 20111108
  Transmission Date: 20120928
  Serious: No
  Sender: FDA-Public Use
  Company Number: US-ASTRAZENECA-2011SE67829

PATIENT
  Age: 58 Year
  Sex: Male
  Weight: 80.7 kg

DRUGS (6)
  1. SEROQUEL XR [Suspect]
     Indication: OBSESSIVE THOUGHTS
     Route: 048
     Dates: start: 20091201
  2. SEROQUEL XR [Suspect]
     Route: 048
  3. CELEXA [Concomitant]
     Indication: OBSESSIVE THOUGHTS
     Route: 048
  4. DIAZEPAM [Concomitant]
     Indication: OBSESSIVE THOUGHTS
     Route: 048
  5. SEROQUEL XR [Suspect]
     Route: 048
  6. SEROQUEL XR [Suspect]
     Indication: VIOLENCE-RELATED SYMPTOM
     Route: 048
     Dates: start: 20091201

REACTIONS (8)
  - PAIN IN EXTREMITY [None]
  - HYPOAESTHESIA [None]
  - BLOOD GLUCOSE INCREASED [None]
  - MUSCULOSKELETAL STIFFNESS [None]
  - OFF LABEL USE [None]
  - MUSCULAR WEAKNESS [None]
  - OEDEMA PERIPHERAL [None]
  - ARTHRITIS [None]
